FAERS Safety Report 9705593 (Version 1)
Quarter: 2013Q4

REPORT INFORMATION
  Report Type: Spontaneous
  Country: US (occurrence: US)
  Receive Date: 20131122
  Receipt Date: 20131122
  Transmission Date: 20140711
  Serious: No
  Sender: FDA-Public Use
  Company Number: US-GILEAD-2008-0017158

PATIENT
  Age: 43 Year
  Sex: Female
  Weight: 99.79 kg

DRUGS (10)
  1. LETAIRIS [Suspect]
     Indication: PULMONARY HYPERTENSION
     Route: 048
     Dates: start: 20080613
  2. FUROSEMIDE [Concomitant]
     Route: 048
  3. KLOR-CON [Concomitant]
     Route: 048
  4. CARTIA XT [Concomitant]
     Route: 048
  5. REVATIO [Concomitant]
     Route: 048
  6. LISINOPRIL [Concomitant]
     Route: 048
  7. TIKOSYN [Concomitant]
     Route: 048
  8. LIPITOR [Concomitant]
     Route: 048
  9. WARFARIN [Concomitant]
     Route: 048
  10. MAGNESIUM OXIDE [Concomitant]
     Route: 048

REACTIONS (1)
  - Nasal congestion [None]
